FAERS Safety Report 8820886 (Version 2)
Quarter: 2012Q4

REPORT INFORMATION
  Report Type: 
  Country: JP (occurrence: JP)
  Receive Date: 20121002
  Receipt Date: 20121022
  Transmission Date: 20130627
  Serious: Yes (Other)
  Sender: FDA-Public Use
  Company Number: JP-PFIZER INC-2012238457

PATIENT
  Age: 14 Year
  Sex: Female

DRUGS (3)
  1. METHYLPREDNISOLONE [Suspect]
     Indication: NEPHROTIC SYNDROME
     Dosage: UNK
  2. METHYLPREDNISOLONE [Suspect]
     Indication: IGA NEPHROPATHY
  3. PREDNISOLONE [Concomitant]
     Indication: NEPHROTIC SYNDROME
     Dosage: 60 mg/day

REACTIONS (4)
  - Osteonecrosis [Unknown]
  - Intraocular pressure increased [Unknown]
  - Glucose urine present [Unknown]
  - Drug effect decreased [Unknown]
